FAERS Safety Report 12350858 (Version 1)
Quarter: 2016Q2

REPORT INFORMATION
  Report Type: Report from Study
  Country: US (occurrence: US)
  Receive Date: 20160510
  Receipt Date: 20160510
  Transmission Date: 20160815
  Serious: No
  Sender: FDA-Public Use
  Company Number: US-VANDA PHARMACEUTICALS, INC-2014TASUS000653

PATIENT
  Age: 60 Year
  Sex: Female

DRUGS (1)
  1. HETLIOZ [Suspect]
     Active Substance: TASIMELTEON
     Indication: CIRCADIAN RHYTHM SLEEP DISORDER
     Dosage: 20 MG, 1 CAPSULE EVRY NIGHT AT BEDTIME
     Route: 048
     Dates: start: 20141216

REACTIONS (3)
  - Abnormal dreams [Not Recovered/Not Resolved]
  - Respiratory tract infection [Unknown]
  - Upper respiratory tract infection [Not Recovered/Not Resolved]

NARRATIVE: CASE EVENT DATE: 201412
